FAERS Safety Report 6858347-5 (Version None)
Quarter: 2010Q3

REPORT INFORMATION
  Report Type: 
  Country: None (occurrence: None)
  Receive Date: 20100719
  Receipt Date: 20080714
  Transmission Date: 20110219
  Serious: No
  Sender: FDA-Public Use
  Company Number: US-PFIZER INC-2008011767

PATIENT
  Sex: Female
  Weight: 58.06 kg

DRUGS (1)
  1. CHANTIX [Suspect]
     Indication: SMOKING CESSATION THERAPY
     Dates: start: 20080201

REACTIONS (3)
  - DECREASED APPETITE [None]
  - RASH [None]
  - THROAT IRRITATION [None]
